FAERS Safety Report 18696999 (Version 1)
Quarter: 2021Q1

REPORT INFORMATION
  Report Type: Spontaneous
  Country: CN (occurrence: CN)
  Receive Date: 20210104
  Receipt Date: 20210104
  Transmission Date: 20210419
  Serious: Yes (Hospitalization)
  Sender: FDA-Public Use
  Company Number: CN-PFIZER INC-2020514367

PATIENT
  Age: 17 Year
  Sex: Female
  Weight: 51 kg

DRUGS (3)
  1. JIA PU LE [Concomitant]
     Indication: SEDATION
     Dosage: 1.000 MG, 1X/DAY
     Route: 048
     Dates: start: 20201208, end: 20201212
  2. ZOLOFT [Suspect]
     Active Substance: SERTRALINE HYDROCHLORIDE
     Indication: DEPRESSION
     Dosage: 150 MG, 1X/DAY
     Route: 048
     Dates: start: 20201203, end: 20201211
  3. QI WEI [Suspect]
     Active Substance: QUETIAPINE FUMARATE
     Indication: THERAPEUTIC PROCEDURE
     Dosage: 0.1 G, 1X/DAY
     Route: 048
     Dates: start: 20201207, end: 20201211

REACTIONS (1)
  - Erythema multiforme [Recovering/Resolving]

NARRATIVE: CASE EVENT DATE: 20201211
